FAERS Safety Report 5262698-8 (Version None)
Quarter: 2007Q1

REPORT INFORMATION
  Report Type: 
  Country: None (occurrence: None)
  Receive Date: 20070312
  Receipt Date: 20070305
  Transmission Date: 20070707
  Serious: Yes (Disabling)
  Sender: FDA-Public Use
  Company Number: GB-MERCK-0605GBR00100

PATIENT
  Age: 63 Year
  Sex: Female
  Weight: 56 kg

DRUGS (4)
  1. ZOCOR [Suspect]
     Indication: BLOOD CHOLESTEROL INCREASED
     Route: 048
     Dates: start: 20050201, end: 20060331
  2. ZOCOR [Suspect]
     Route: 048
     Dates: start: 20060409
  3. ATENOLOL [Concomitant]
     Indication: HYPERTENSION
     Route: 048
     Dates: start: 20010101
  4. AMLODIPINE BESYLATE [Concomitant]
     Indication: HYPERTENSION
     Route: 048
     Dates: start: 20050101

REACTIONS (6)
  - MUSCULAR WEAKNESS [None]
  - MYALGIA [None]
  - NAUSEA [None]
  - PAIN [None]
  - PARAESTHESIA [None]
  - PYREXIA [None]
